FAERS Safety Report 17989123 (Version 1)
Quarter: 2020Q3

REPORT INFORMATION
  Report Type: Spontaneous
  Country: JP (occurrence: JP)
  Receive Date: 20200707
  Receipt Date: 20200707
  Transmission Date: 20201103
  Serious: Yes (Other)
  Sender: FDA-Public Use
  Company Number: JP-PFIZER INC-2020257193

PATIENT

DRUGS (1)
  1. BOSULIF [Suspect]
     Active Substance: BOSUTINIB MONOHYDRATE
     Dosage: 500 MG
     Route: 048

REACTIONS (2)
  - Platelet count decreased [Unknown]
  - Haemorrhage subcutaneous [Unknown]

NARRATIVE: CASE EVENT DATE: 20200703
